FAERS Safety Report 4726464-1 (Version None)
Quarter: 2005Q3

REPORT INFORMATION
  Report Type: 
  Country: None (occurrence: None)
  Receive Date: 20050725
  Receipt Date: 20030512
  Transmission Date: 20060218
  Serious: Yes (Other)
  Sender: FDA-Public Use
  Company Number: 172987

PATIENT
  Age: 57 Year
  Sex: Female
  Weight: 80 kg

DRUGS (4)
  1. AVONEX [Suspect]
     Indication: MULTIPLE SCLEROSIS
     Dosage: 30 UG; QW; IM
     Route: 030
     Dates: start: 19991115
  2. DERMESTRIL [Concomitant]
  3. COLPRONE TAB [Concomitant]
  4. FLUDEX [Concomitant]

REACTIONS (2)
  - MACROCYTOSIS [None]
  - MYELODYSPLASTIC SYNDROME [None]
